FAERS Safety Report 11464479 (Version 3)
Quarter: 2015Q3

REPORT INFORMATION
  Report Type: Spontaneous
  Country: US (occurrence: US)
  Receive Date: 20150831
  Receipt Date: 20150903
  Transmission Date: 20151125
  Serious: No
  Sender: FDA-Public Use
  Company Number: US-ELI_LILLY_AND_COMPANY-US201106005201

PATIENT
  Sex: Female

DRUGS (2)
  1. CYMBALTA [Suspect]
     Active Substance: DULOXETINE HYDROCHLORIDE
     Indication: FIBROMYALGIA
     Dosage: 30 MG, QD
     Dates: start: 201106
  2. CYMBALTA [Suspect]
     Active Substance: DULOXETINE HYDROCHLORIDE
     Dosage: 60 MG, QD

REACTIONS (8)
  - Alopecia [Not Recovered/Not Resolved]
  - Rash [Recovered/Resolved]
  - Throat tightness [Unknown]
  - Skin exfoliation [Not Recovered/Not Resolved]
  - Mydriasis [Not Recovered/Not Resolved]
  - Pain [Not Recovered/Not Resolved]
  - Corneal disorder [Not Recovered/Not Resolved]
  - Blood glucose increased [Unknown]
